FAERS Safety Report 16080656 (Version 3)
Quarter: 2019Q2

REPORT INFORMATION
  Report Type: Spontaneous
  Country: CH (occurrence: CH)
  Receive Date: 20190315
  Receipt Date: 20190424
  Transmission Date: 20190711
  Serious: Yes (Hospitalization, Other)
  Sender: FDA-Public Use
  Company Number: CH-WHANIN PHARM. CO., LTD.-2019M1025134

PATIENT
  Age: 66 Year
  Sex: Male

DRUGS (10)
  1. CLOZAPINE. [Suspect]
     Active Substance: CLOZAPINE
     Indication: BIPOLAR I DISORDER
     Dosage: 12.5 MILLIGRAM
     Route: 065
  2. MESALAZINE [Concomitant]
     Active Substance: MESALAMINE
     Indication: CROHN^S DISEASE
     Dosage: 1000 MILLIGRAM
  3. QUETIAPINE. [Suspect]
     Active Substance: QUETIAPINE
     Indication: MANIA
     Dosage: 200 MILLIGRAM, QD
     Route: 065
  4. AZATHIOPRINE. [Concomitant]
     Active Substance: AZATHIOPRINE
     Indication: CROHN^S DISEASE
     Dosage: 50 MILLIGRAM
     Route: 065
  5. CLOZAPINE. [Interacting]
     Active Substance: CLOZAPINE
     Indication: MANIA
     Dosage: 50 MILLIGRAM, QD
     Route: 065
  6. RISPERIDONE. [Suspect]
     Active Substance: RISPERIDONE
     Indication: BIPOLAR I DISORDER
     Dosage: 5 MILLIGRAM, QD
     Route: 065
  7. VALPROIC ACID. [Interacting]
     Active Substance: VALPROIC ACID
     Indication: BIPOLAR I DISORDER
     Dosage: 500 MILLIGRAM
     Route: 065
  8. QUETIAPINE. [Suspect]
     Active Substance: QUETIAPINE
     Indication: CROHN^S DISEASE
     Dosage: UNK
  9. RISPERIDONE. [Suspect]
     Active Substance: RISPERIDONE
     Indication: MANIA
  10. VALPROIC ACID. [Interacting]
     Active Substance: VALPROIC ACID
     Indication: MANIA
     Dosage: 300 MILLIGRAM, QD
     Route: 065

REACTIONS (5)
  - Drug withdrawal syndrome [Recovered/Resolved]
  - Cholinergic syndrome [Recovering/Resolving]
  - Labelled drug-drug interaction medication error [Recovering/Resolving]
  - Catatonia [Recovered/Resolved]
  - Rebound effect [Recovering/Resolving]
